FAERS Safety Report 9646060 (Version 1)
Quarter: 2013Q4

REPORT INFORMATION
  Report Type: Spontaneous
  Country: ES (occurrence: ES)
  Receive Date: 20131025
  Receipt Date: 20131025
  Transmission Date: 20140711
  Serious: Yes (Other)
  Sender: FDA-Public Use
  Company Number: ES-CUBIST PHARMACEUTICAL, INC.-2013CBST000972

PATIENT
  Sex: 0

DRUGS (4)
  1. CUBICIN [Suspect]
     Indication: STAPHYLOCOCCAL BACTERAEMIA
     Dosage: 8 MG/KG, UNK
     Route: 065
  2. CUBICIN [Suspect]
     Indication: INFECTION
  3. LINEZOLID [Concomitant]
     Indication: STAPHYLOCOCCAL BACTERAEMIA
     Dosage: UNK UNK, UNK
     Route: 065
  4. LINEZOLID [Concomitant]
     Indication: INFECTION

REACTIONS (2)
  - Staphylococcal bacteraemia [Recovered/Resolved]
  - Treatment failure [Unknown]
